FAERS Safety Report 15777397 (Version 3)
Quarter: 2019Q3

REPORT INFORMATION
  Report Type: Report from Study
  Country: US (occurrence: US)
  Receive Date: 20181231
  Receipt Date: 20190701
  Transmission Date: 20191004
  Serious: Yes (Other)
  Sender: FDA-Public Use
  Company Number: US-CLOVIS ONCOLOGY-CLO-2018-001288

PATIENT
  Age: 64 Year
  Sex: Female

DRUGS (1)
  1. RUBRACA [Suspect]
     Active Substance: RUCAPARIB CAMSYLATE
     Indication: OVARIAN CANCER
     Dosage: 500 MG, BID
     Route: 048
     Dates: start: 20180807

REACTIONS (6)
  - Thrombocytopenia [Unknown]
  - Leukopenia [Recovered/Resolved]
  - Dysgeusia [Recovering/Resolving]
  - Throat irritation [Recovered/Resolved]
  - Stomatitis [Unknown]
  - Migraine [Unknown]

NARRATIVE: CASE EVENT DATE: 20180807
